FAERS Safety Report 8967852 (Version 1)
Quarter: 2012Q4

REPORT INFORMATION
  Report Type: 
  Country: US (occurrence: US)
  Receive Date: 20121217
  Receipt Date: 20121217
  Transmission Date: 20130627
  Serious: No
  Sender: FDA-Public Use
  Company Number: US-009507513-1212USA004551

PATIENT
  Sex: Female
  Weight: 58.96 kg

DRUGS (3)
  1. IMPLANON [Suspect]
     Indication: CONTRACEPTION
     Dosage: 68 mg, every 3 years
     Route: 059
     Dates: start: 20120529
  2. FLUOXETINE [Concomitant]
  3. PRILOSEC [Concomitant]

REACTIONS (7)
  - Migraine [Not Recovered/Not Resolved]
  - Medical device complication [Not Recovered/Not Resolved]
  - Swelling face [Not Recovered/Not Resolved]
  - Haematochezia [Not Recovered/Not Resolved]
  - Ulcer [Not Recovered/Not Resolved]
  - Gastritis [Not Recovered/Not Resolved]
  - Menorrhagia [Not Recovered/Not Resolved]
